FAERS Safety Report 12088461 (Version 1)
Quarter: 2016Q1

REPORT INFORMATION
  Report Type: Spontaneous
  Country: GB (occurrence: GB)
  Receive Date: 20160218
  Receipt Date: 20160218
  Transmission Date: 20160526
  Serious: Yes (Other)
  Sender: FDA-Public Use
  Company Number: GB-009507513-1602GBR007371

PATIENT
  Age: 75 Year
  Sex: Male
  Weight: 75 kg

DRUGS (2)
  1. BISOPROLOL FUMARATE. [Concomitant]
     Active Substance: BISOPROLOL FUMARATE
     Dosage: UNK
  2. ELOCON [Suspect]
     Active Substance: MOMETASONE FUROATE
     Indication: ECZEMA
     Dosage: SPREADING THIN LAYER OVER ECZEMA ON TORSO AND ARMS
     Route: 061
     Dates: start: 20160121, end: 20160128

REACTIONS (2)
  - Urticaria [Recovered/Resolved with Sequelae]
  - Swollen tongue [Recovered/Resolved with Sequelae]

NARRATIVE: CASE EVENT DATE: 20160128
